FAERS Safety Report 7392992-6 (Version None)
Quarter: 2011Q2

REPORT INFORMATION
  Report Type: 
  Country: None (occurrence: None)
  Receive Date: 20110404
  Receipt Date: 20110401
  Transmission Date: 20111010
  Serious: Yes (Death, Other)
  Sender: FDA-Public Use
  Company Number: US-B.I. PHARMACEUTICALS,INC./RIDGEFIELD-2011-BP-09827BP

PATIENT
  Age: 82 Year
  Sex: Female

DRUGS (9)
  1. ALLOPURINOL [Concomitant]
  2. PLAVIX [Concomitant]
  3. IMDUR [Concomitant]
  4. COREG [Concomitant]
  5. CRESTOR [Concomitant]
  6. ASPIRIN [Concomitant]
  7. LASIX [Concomitant]
  8. PRADAXA [Suspect]
     Indication: ATRIAL FIBRILLATION
     Dosage: 300 MG
     Route: 048
     Dates: start: 20110305, end: 20110308
  9. ZESTRIL [Concomitant]

REACTIONS (5)
  - ACID BASE BALANCE ABNORMAL [None]
  - RENAL FAILURE ACUTE [None]
  - PNEUMONIA [None]
  - HYPOTENSION [None]
  - GASTROINTESTINAL HAEMORRHAGE [None]
